FAERS Safety Report 9880260 (Version 3)
Quarter: 2014Q2

REPORT INFORMATION
  Report Type: Report from Study
  Country: CA (occurrence: CA)
  Receive Date: 20140207
  Receipt Date: 20140428
  Transmission Date: 20141212
  Serious: Yes (Life-Threatening, Hospitalization, Other)
  Sender: FDA-Public Use
  Company Number: CA-BRISTOL-MYERS SQUIBB COMPANY-15784523

PATIENT
  Age: 59 Year
  Sex: Male

DRUGS (6)
  1. ORENCIA [Suspect]
     Indication: RHEUMATOID ARTHRITIS
     Dosage: INF:14;LAST:26MY11,9FB12,23MR12?OG64569,3C1662(EXP:MR12,SE15)?1000MG-1G64569(EXPMA14)?AP16?JL16
     Route: 042
     Dates: start: 20110331
  2. COUMADIN [Suspect]
  3. AMOXICILLIN [Suspect]
  4. METFORMIN [Concomitant]
  5. ARAVA [Concomitant]
  6. LIPITOR [Concomitant]

REACTIONS (10)
  - Coronary artery occlusion [Unknown]
  - Circulatory collapse [Unknown]
  - Thrombosis [Unknown]
  - Adverse event [Unknown]
  - Cellulitis [Recovered/Resolved]
  - Fat embolism [Unknown]
  - Blood glucose increased [Unknown]
  - Vomiting [Not Recovered/Not Resolved]
  - Diarrhoea [Not Recovered/Not Resolved]
  - International normalised ratio increased [Not Recovered/Not Resolved]
